FAERS Safety Report 6612418-7 (Version None)
Quarter: 2010Q1

REPORT INFORMATION
  Report Type: 
  Country: None (occurrence: None)
  Receive Date: 20100303
  Receipt Date: 20100223
  Transmission Date: 20100710
  Serious: Yes (Life-Threatening, Hospitalization)
  Sender: FDA-Public Use
  Company Number: PHHY2010FR10543

PATIENT
  Sex: Male

DRUGS (9)
  1. GLEEVEC [Suspect]
     Indication: CHRONIC MYELOID LEUKAEMIA
     Dosage: UNK
     Route: 048
     Dates: start: 20011001, end: 20070601
  2. INTERFERON ALFA-2A [Suspect]
     Indication: CHRONIC MYELOID LEUKAEMIA
     Dosage: UNK
     Dates: start: 19940101, end: 20011001
  3. SPRYCEL [Suspect]
     Indication: CHRONIC MYELOID LEUKAEMIA
     Dosage: 70 MG, UNK
     Route: 048
     Dates: start: 20070601, end: 20100125
  4. ASPEGIC 1000 [Concomitant]
  5. PLAVIX [Concomitant]
  6. TAHOR [Concomitant]
  7. COVERSYL [Concomitant]
  8. KREDEX [Concomitant]
     Dosage: 50 MG DAILY
  9. TRINITRINE [Concomitant]
     Dosage: IF NECESSARY

REACTIONS (4)
  - ACUTE CORONARY SYNDROME [None]
  - CHEST PAIN [None]
  - CORONARY ARTERY OCCLUSION [None]
  - ELECTROCARDIOGRAM ST SEGMENT ELEVATION [None]
